FAERS Safety Report 16544359 (Version 1)
Quarter: 2019Q3

REPORT INFORMATION
  Report Type: Spontaneous
  Country: US (occurrence: US)
  Receive Date: 20190528
  Receipt Date: 20190528
  Transmission Date: 20191004
  Serious: Yes (Other)
  Sender: FDA-Public Use
  Company Number: None

PATIENT
  Age: 51 Year
  Sex: Female
  Weight: 92.99 kg

DRUGS (6)
  1. ABILIFY [Suspect]
     Active Substance: ARIPIPRAZOLE
     Indication: SCHIZOPHRENIA
     Dosage: ?          QUANTITY:15 MG MILLIGRAM(S);?
     Route: 048
     Dates: start: 20181017
  2. BIOTIN 1000MGS [Concomitant]
  3. STOOL SOFTENER (DOCUSATE) [Concomitant]
     Active Substance: DOCUSATE
  4. MULTIVITAMIN NATURE^S BOUNTY WOMEN^S MULTIVITAMIN WITH COLLEGEN 50 MG [Concomitant]
  5. VENIPHEX [Concomitant]
  6. ASPIRIN 80MG [Concomitant]

REACTIONS (2)
  - Blood creatine increased [None]
  - Blood prolactin increased [None]

NARRATIVE: CASE EVENT DATE: 20190520
